FAERS Safety Report 5983568-3 (Version None)
Quarter: 2008Q4

REPORT INFORMATION
  Report Type: 
  Country: None (occurrence: None)
  Receive Date: 20081208
  Receipt Date: 20081126
  Transmission Date: 20090506
  Serious: Yes (Life-Threatening, Hospitalization)
  Sender: FDA-Public Use
  Company Number: US-ROCHE-580074

PATIENT
  Sex: Female
  Weight: 101 kg

DRUGS (15)
  1. CAPECITABINE [Suspect]
     Indication: RECTAL CANCER METASTATIC
     Dosage: HAD COMPLETED ONE CYCLE
     Route: 048
     Dates: start: 20080801, end: 20080901
  2. BENAZEPRIL HYDROCHLORIDE [Concomitant]
     Route: 048
  3. LIPITOR [Concomitant]
     Dosage: AT NIGHT
     Route: 048
  4. LASIX [Concomitant]
     Route: 048
  5. CELLCEPT [Concomitant]
     Route: 048
  6. PREDNISONE TAB [Concomitant]
     Route: 048
  7. CISPLATIN [Suspect]
     Indication: RECTAL CANCER METASTATIC
     Dosage: STRENGTH: 75 MG/M2; ONLY RECEIVED ONE DOSE
     Route: 042
     Dates: start: 20080801
  8. ATENOLOL [Concomitant]
     Route: 048
  9. NITROFURANTOIN [Concomitant]
     Route: 048
  10. ASPIRIN [Concomitant]
     Route: 048
  11. CIMETIDINE [Concomitant]
     Route: 048
  12. LANTUS [Concomitant]
     Dosage: DRUG: LANTUS INSULIN
  13. NOVOLOG [Concomitant]
     Dosage: DRUG: NOVOLOG INSULIN
  14. REGULAR INSULIN [Concomitant]
     Dosage: DRUG: SLIDING SCALE FOR REGULAR INSULIN
  15. NORCO [Concomitant]
     Dosage: AS NEEDED

REACTIONS (4)
  - ASTHENIA [None]
  - DEHYDRATION [None]
  - DIARRHOEA [None]
  - GASTROINTESTINAL INFLAMMATION [None]
